FAERS Safety Report 20512968 (Version 1)
Quarter: 2022Q1

REPORT INFORMATION
  Report Type: Spontaneous
  Country: CA (occurrence: CA)
  Receive Date: 20220224
  Receipt Date: 20220224
  Transmission Date: 20220423
  Serious: Yes (Other)
  Sender: FDA-Public Use
  Company Number: CA-VELOXIS PHARMACEUTICALS-2022VELCA-000108

PATIENT
  Age: 50 Year
  Sex: Female

DRUGS (1)
  1. TACROLIMUS [Suspect]
     Active Substance: TACROLIMUS
     Indication: Liver transplant
     Dosage: 3.5 MILLIGRAM, QD
     Route: 048
     Dates: start: 20220114

REACTIONS (3)
  - Angina pectoris [Unknown]
  - Chest discomfort [Unknown]
  - Heart rate irregular [Unknown]
